FAERS Safety Report 21145708 (Version 4)
Quarter: 2022Q3

REPORT INFORMATION
  Report Type: Spontaneous
  Country: DE (occurrence: DE)
  Receive Date: 20220729
  Receipt Date: 20220829
  Transmission Date: 20221027
  Serious: Yes (Hospitalization)
  Sender: FDA-Public Use
  Company Number: DE-NOVARTISPH-NVSC2022DE170609

PATIENT
  Age: 66 Year
  Sex: Female
  Weight: 62 kg

DRUGS (24)
  1. CANDESARTAN [Suspect]
     Active Substance: CANDESARTAN
     Indication: Condition aggravated
     Dosage: 32 MILLIGRAM, QD
     Route: 048
     Dates: start: 20220311
  2. CANDESARTAN [Suspect]
     Active Substance: CANDESARTAN
     Indication: Hypertension
     Dosage: 0.16 MILLIGRAM, QD
     Route: 048
     Dates: start: 20220705
  3. CANDESARTAN [Suspect]
     Active Substance: CANDESARTAN
     Dosage: 0.16 MG, QD
     Route: 048
     Dates: start: 20220707
  4. EZETIMIBE [Suspect]
     Active Substance: EZETIMIBE
     Indication: Hypercholesterolaemia
     Dosage: UNK
     Route: 048
  5. EZETIMIBE [Suspect]
     Active Substance: EZETIMIBE
     Indication: Condition aggravated
     Dosage: 10 MG, QD
     Route: 048
     Dates: start: 20220311
  6. EZETIMIBE [Suspect]
     Active Substance: EZETIMIBE
     Dosage: 10 MG, QD
     Route: 048
     Dates: start: 20220704
  7. CARBOPLATIN [Suspect]
     Active Substance: CARBOPLATIN
     Indication: Non-small cell lung cancer stage III
     Dosage: AREA UNDER THE CURVE (AUC) 6 MG/ML/MIN ON DAY 1 IN CYCLE 1, ONCE
     Route: 042
     Dates: start: 20220419, end: 20220419
  8. CARBOPLATIN [Suspect]
     Active Substance: CARBOPLATIN
     Dosage: 681.24 MG, 1 TOTAL (681.24 MILLIGRAM, UNDER THE CURVE (AUC) 6 MG/ML/MIN, ONCE)
     Route: 042
     Dates: start: 20220419, end: 20220614
  9. CARBOPLATIN [Suspect]
     Active Substance: CARBOPLATIN
     Dosage: AREA UNDER THE CURVE (AUC) 2 MG/ML/MIN ON DAY 1, 8 AND 15 IN CYCLE 2 AND 3; CYCLICAL
     Route: 042
     Dates: start: 20220509, end: 20220614
  10. PACLITAXEL [Suspect]
     Active Substance: PACLITAXEL
     Indication: Non-small cell lung cancer stage III
     Dosage: 200 MG/M2, ON DAY 1 IN CYCLE 1; (DOSE ALSO REPORTED AS 314 MG), ONCE
     Route: 042
     Dates: start: 20220419, end: 20220419
  11. PACLITAXEL [Suspect]
     Active Substance: PACLITAXEL
     Dosage: 314 MG, 1 TOTAL (200 MG/M2 (DOSE ALSO REPORTED AS 314 MG), ONCE)
     Route: 042
     Dates: start: 20220419, end: 20220614
  12. PACLITAXEL [Suspect]
     Active Substance: PACLITAXEL
     Dosage: 45 MG/M2, ON DAY 1, 8 AND 15 IN CYCLE 2 AND 3 CYCLICAL
     Route: 042
     Dates: start: 20220509, end: 20220614
  13. METOPROLOL [Suspect]
     Active Substance: METOPROLOL
     Indication: Insomnia
     Dosage: 47.5 MG, QD
     Route: 048
     Dates: start: 20220311
  14. METOPROLOL [Suspect]
     Active Substance: METOPROLOL
     Indication: Condition aggravated
     Dosage: 47.5 MG, QD
     Route: 048
     Dates: start: 20220705
  15. METOPROLOL [Suspect]
     Active Substance: METOPROLOL
     Indication: Hypertension
  16. INDACATEROL [Suspect]
     Active Substance: INDACATEROL
     Indication: Condition aggravated
     Dosage: 85 MICROGRAM, QD; FORMULATION REPORTED AS INHALANT
     Dates: start: 20220705
  17. HYDROCHLOROTHIAZIDE [Suspect]
     Active Substance: HYDROCHLOROTHIAZIDE
     Indication: Condition aggravated
     Dosage: 25 MG, QD
     Route: 048
     Dates: start: 20220311
  18. HYDROCHLOROTHIAZIDE [Suspect]
     Active Substance: HYDROCHLOROTHIAZIDE
     Indication: Hypertension
     Dosage: 25 MG, QD
     Route: 048
     Dates: start: 20220704
  19. ATORVASTATIN [Suspect]
     Active Substance: ATORVASTATIN
     Indication: Hypercholesterolaemia
     Dosage: 40 MILLIGRAM, QD
     Route: 048
     Dates: start: 20220311
  20. ATORVASTATIN [Suspect]
     Active Substance: ATORVASTATIN
     Indication: Condition aggravated
     Dosage: 40 MILLIGRAM, QD
     Route: 048
     Dates: start: 20220704
  21. PEMBROLIZUMAB [Suspect]
     Active Substance: PEMBROLIZUMAB
     Indication: Non-small cell lung cancer stage III
     Dosage: UNK
     Route: 065
  22. ASPIRIN [Suspect]
     Active Substance: ASPIRIN
     Indication: Anticoagulant therapy
     Dosage: 100 MG, QD
     Route: 048
     Dates: start: 20220311
  23. ASPIRIN [Suspect]
     Active Substance: ASPIRIN
     Indication: Condition aggravated
     Dosage: 100 MG, QD
     Route: 048
     Dates: start: 20220705
  24. ZOPICLONE [Concomitant]
     Active Substance: ZOPICLONE
     Indication: Insomnia
     Dosage: 3.75 MILLIGRAM, QD
     Route: 048
     Dates: start: 20220607

REACTIONS (3)
  - Chronic obstructive pulmonary disease [Recovered/Resolved]
  - Radiation pneumonitis [Recovered/Resolved]
  - Product use in unapproved indication [Unknown]

NARRATIVE: CASE EVENT DATE: 20220629
